FAERS Safety Report 24680472 (Version 2)
Quarter: 2024Q4

REPORT INFORMATION
  Report Type: Spontaneous
  Country: US (occurrence: US)
  Receive Date: 20241129
  Receipt Date: 20241206
  Transmission Date: 20250115
  Serious: Yes (Other)
  Sender: ALEXION PHARMACEUTICALS
  Company Number: US-AstraZeneca-CH-00754451A

PATIENT
  Age: 87 Year
  Weight: 63.049 kg

DRUGS (11)
  1. TEZSPIRE [Suspect]
     Active Substance: TEZEPELUMAB-EKKO
     Indication: Asthma
  2. TEZSPIRE [Suspect]
     Active Substance: TEZEPELUMAB-EKKO
  3. TEZSPIRE [Suspect]
     Active Substance: TEZEPELUMAB-EKKO
  4. TEZSPIRE [Suspect]
     Active Substance: TEZEPELUMAB-EKKO
  5. ALBUTEROL SULFATE [Concomitant]
     Active Substance: ALBUTEROL SULFATE
  6. ATENOLOL [Concomitant]
     Active Substance: ATENOLOL
  7. FAMOTIDINE [Concomitant]
     Active Substance: FAMOTIDINE
  8. IPRATROPIUM [Concomitant]
     Active Substance: IPRATROPIUM
  9. PIMECROLIMUS [Concomitant]
     Active Substance: PIMECROLIMUS
  10. PREDNISONE [Concomitant]
     Active Substance: PREDNISONE
  11. TAMSULOSIN [Concomitant]
     Active Substance: TAMSULOSIN

REACTIONS (6)
  - Chest pain [Recovered/Resolved]
  - Myocardial infarction [Unknown]
  - Ventricular extrasystoles [Unknown]
  - Hypertension [Unknown]
  - Extrasystoles [Unknown]
  - Supraventricular tachycardia [Unknown]
